FAERS Safety Report 16193650 (Version 1)
Quarter: 2019Q2

REPORT INFORMATION
  Report Type: Spontaneous
  Country: US (occurrence: US)
  Receive Date: 20190413
  Receipt Date: 20190413
  Transmission Date: 20190711
  Serious: Yes (Death, Other)
  Sender: FDA-Public Use
  Company Number: US-APOTEX-2019AP011792

PATIENT
  Age: 65 Year
  Sex: Male

DRUGS (1)
  1. ENOXAPARIN [Suspect]
     Active Substance: ENOXAPARIN
     Indication: PULMONARY EMBOLISM
     Route: 065

REACTIONS (4)
  - Pericardial haemorrhage [Fatal]
  - Cardiac tamponade [Fatal]
  - Cardiopulmonary failure [Fatal]
  - Condition aggravated [Fatal]
